FAERS Safety Report 5378106-2 (Version None)
Quarter: 2007Q3

REPORT INFORMATION
  Report Type: 
  Country: None (occurrence: None)
  Receive Date: 20070702
  Receipt Date: 20070702
  Transmission Date: 20080115
  Serious: Yes (Life-Threatening)
  Sender: FDA-Public Use
  Company Number: None

PATIENT
  Age: 61 Year
  Sex: Female
  Weight: 82 kg

DRUGS (1)
  1. BIVALIRUDIN 250MG IN D5W 50ML [Suspect]
     Dosage: SEE IMAGE
     Route: 042
     Dates: start: 20070622

REACTIONS (3)
  - CARDIOGENIC SHOCK [None]
  - INTRACARDIAC THROMBUS [None]
  - RESUSCITATION [None]
